FAERS Safety Report 4647034-X (Version None)
Quarter: 2005Q2

REPORT INFORMATION
  Report Type: 
  Country: None (occurrence: None)
  Receive Date: 20050331
  Receipt Date: 20050203
  Transmission Date: 20051028
  Serious: No
  Sender: FDA-Public Use
  Company Number: 05P-163-0289438

PATIENT
  Age: 66 Year
  Sex: Female
  Weight: 89.3586 kg

DRUGS (3)
  1. HUMIRA [Suspect]
     Indication: RHEUMATOID ARTHRITIS
     Dosage: 40 MG, 1 IN 2 WK, SUBCUTANEOUS
     Route: 058
     Dates: start: 20041001
  2. AMLODIPINE BESYLATE [Concomitant]
  3. DIOVAN [Concomitant]

REACTIONS (5)
  - EPISTAXIS [None]
  - EYE INFECTION BACTERIAL [None]
  - INJECTION SITE ERYTHEMA [None]
  - INJECTION SITE PRURITUS [None]
  - SINUSITIS [None]
